FAERS Safety Report 4817515-4 (Version None)
Quarter: 2005Q4

REPORT INFORMATION
  Report Type: 
  Country: None (occurrence: None)
  Receive Date: 20051101
  Receipt Date: 20051025
  Transmission Date: 20060501
  Serious: Yes (Other)
  Sender: FDA-Public Use
  Company Number: US-MERCK-0510USA09303

PATIENT
  Sex: Female

DRUGS (3)
  1. VIOXX [Suspect]
     Route: 048
     Dates: start: 19990901, end: 20000731
  2. VIOXX [Suspect]
     Route: 048
     Dates: start: 20010430, end: 20021030
  3. VIOXX [Suspect]
     Route: 048
     Dates: start: 20030725, end: 20031008

REACTIONS (1)
  - MYOCARDIAL INFARCTION [None]
